FAERS Safety Report 19169847 (Version 1)
Quarter: 2021Q2

REPORT INFORMATION
  Report Type: Spontaneous
  Country: US (occurrence: US)
  Receive Date: 20210422
  Receipt Date: 20210422
  Transmission Date: 20210717
  Serious: No
  Sender: FDA-Public Use
  Company Number: US-PFIZER INC-2021376452

PATIENT
  Age: 61 Year
  Sex: Female

DRUGS (1)
  1. DEPO?MEDROL [Suspect]
     Active Substance: METHYLPREDNISOLONE ACETATE
     Dosage: 80 MG
     Dates: start: 20210308

REACTIONS (7)
  - Toothache [Unknown]
  - Pyrexia [Unknown]
  - Fatigue [Unknown]
  - Headache [Unknown]
  - Insomnia [Unknown]
  - Flushing [Unknown]
  - Pain in jaw [Unknown]

NARRATIVE: CASE EVENT DATE: 20210309
